FAERS Safety Report 14012712 (Version 1)
Quarter: 2017Q3

REPORT INFORMATION
  Report Type: Spontaneous
  Country: CA (occurrence: CA)
  Receive Date: 20170926
  Receipt Date: 20170926
  Transmission Date: 20171128
  Serious: Yes (Hospitalization)
  Sender: FDA-Public Use
  Company Number: CA-TEVA-810388ACC

PATIENT
  Age: 92 Year
  Sex: Female
  Weight: 74.91 kg

DRUGS (4)
  1. ROSUVASTATIN. [Concomitant]
     Active Substance: ROSUVASTATIN
  2. VALSARTAN. [Concomitant]
     Active Substance: VALSARTAN
  3. METRONIDAZOLE TABLET 250MG [Suspect]
     Active Substance: METRONIDAZOLE
     Indication: GASTROINTESTINAL INFECTION
     Dosage: 2 DOSAGE FORMS DAILY;
     Route: 048
  4. CLOPIDOGREL [Concomitant]
     Active Substance: CLOPIDOGREL BISULFATE

REACTIONS (12)
  - Balance disorder [Recovering/Resolving]
  - Flatulence [Recovering/Resolving]
  - Pruritus [Recovering/Resolving]
  - Depression [Recovering/Resolving]
  - Diarrhoea [Recovering/Resolving]
  - Muscle spasms [Recovering/Resolving]
  - Dizziness [Recovering/Resolving]
  - Dysgeusia [Recovering/Resolving]
  - Asthenia [Recovering/Resolving]
  - Rhinorrhoea [Recovering/Resolving]
  - Vision blurred [Recovering/Resolving]
  - Dry mouth [Recovering/Resolving]
